FAERS Safety Report 5253692-1 (Version None)
Quarter: 2007Q1

REPORT INFORMATION
  Report Type: 
  Country: None (occurrence: None)
  Receive Date: 20061201
  Receipt Date: 20060807
  Transmission Date: 20070707
  Serious: No
  Sender: FDA-Public Use
  Company Number: 2006PV018829

PATIENT
  Age: 65 Year
  Sex: Female
  Weight: 91.173 kg

DRUGS (6)
  1. BYETTA [Suspect]
     Indication: DIABETES MELLITUS NON-INSULIN-DEPENDENT
     Dosage: 5 MCG;BID;SC
     Route: 058
     Dates: start: 20060711
  2. AMARYL [Concomitant]
  3. ZOCOR [Concomitant]
  4. COZAAR [Concomitant]
  5. NEXIUM [Concomitant]
  6. ASPIRIN [Concomitant]

REACTIONS (4)
  - ABDOMINAL DISTENSION [None]
  - ABDOMINAL PAIN [None]
  - CONSTIPATION [None]
  - WEIGHT DECREASED [None]
